FAERS Safety Report 4686802-5 (Version None)
Quarter: 2005Q2

REPORT INFORMATION
  Report Type: 
  Country: None (occurrence: None)
  Receive Date: 20050608
  Receipt Date: 20050530
  Transmission Date: 20051028
  Serious: Yes (Other)
  Sender: FDA-Public Use
  Company Number: 2004095387

PATIENT
  Age: 40 Year
  Sex: Female

DRUGS (1)
  1. XALATAN [Suspect]
     Indication: PIGMENTARY GLAUCOMA
     Dosage: 2 DROP (1 DROP, 1 IN 1 D), INTRAOCULAR
     Route: 031
     Dates: start: 19980101, end: 20041001

REACTIONS (5)
  - CONDITION AGGRAVATED [None]
  - CYANOPSIA [None]
  - HEADACHE [None]
  - MYOPIA [None]
  - VISUAL ACUITY REDUCED [None]
